FAERS Safety Report 16953258 (Version 1)
Quarter: 2019Q4

REPORT INFORMATION
  Report Type: Spontaneous
  Country: JP (occurrence: JP)
  Receive Date: 20191023
  Receipt Date: 20191023
  Transmission Date: 20200122
  Serious: Yes (Hospitalization)
  Sender: FDA-Public Use
  Company Number: JP-EISAI MEDICAL RESEARCH-EC-2019-060581

PATIENT
  Age: 59 Year
  Sex: Female

DRUGS (2)
  1. RABECURE [Suspect]
     Active Substance: AMOXICILLIN\CLARITHROMYCIN\RABEPRAZOLE
     Indication: HELICOBACTER INFECTION
     Dosage: DOSE AND FREQUENCY UNKNOWN
     Route: 048
     Dates: start: 20190802, end: 20190804
  2. DAIKENCHUTO [Concomitant]
     Active Substance: HERBALS
     Indication: PRODUCT USED FOR UNKNOWN INDICATION
     Dosage: DOSE AND FREQUENCY UNKNOWN
     Route: 065

REACTIONS (2)
  - Duodenal obstruction [Recovering/Resolving]
  - Gastrointestinal wall thickening [Recovered/Resolved]

NARRATIVE: CASE EVENT DATE: 20190803
